FAERS Safety Report 17508410 (Version 4)
Quarter: 2020Q2

REPORT INFORMATION
  Report Type: Report from Study
  Country: CA (occurrence: CA)
  Receive Date: 20200306
  Receipt Date: 20200406
  Transmission Date: 20200713
  Serious: Yes (Other)
  Sender: FDA-Public Use
  Company Number: CA-GLAXOSMITHKLINE-CA2020AMR037610

PATIENT
  Sex: Female

DRUGS (2)
  1. MEPOLIZUMAB [Suspect]
     Active Substance: MEPOLIZUMAB
     Indication: ASTHMA
     Dosage: 100 MG, Z
     Route: 042
     Dates: start: 20190708
  2. MEPOLIZUMAB [Suspect]
     Active Substance: MEPOLIZUMAB
     Dosage: 100 MG, Z,MONTHLY
     Route: 042

REACTIONS (7)
  - Mucosal discolouration [Recovered/Resolved]
  - Pyrexia [Unknown]
  - Cough [Recovering/Resolving]
  - Respiratory tract infection [Recovered/Resolved]
  - Secretion discharge [Recovered/Resolved]
  - Influenza like illness [Unknown]
  - Viral infection [Unknown]
